FAERS Safety Report 10874010 (Version 1)
Quarter: 2015Q1

REPORT INFORMATION
  Report Type: Spontaneous
  Country: US (occurrence: None)
  Receive Date: 20150224
  Receipt Date: 20150224
  Transmission Date: 20150721
  Serious: Yes (Other)
  Sender: FDA-Public Use
  Company Number: US-H14001-15-00282

PATIENT
  Age: 64 Year
  Sex: Female

DRUGS (5)
  1. PYRAZINAMIDE (PYRAZINAMIDE) [Suspect]
     Active Substance: PYRAZINAMIDE
     Indication: TUBERCULOSIS
  2. VITAMIN B6 [Suspect]
     Active Substance: PYRIDOXINE HYDROCHLORIDE
     Indication: TUBERCULOSIS
  3. ISONIAZID (ISONIAZID) (UNKNOWN) (ISONIAZID) [Suspect]
     Active Substance: ISONIAZID
     Indication: TUBERCULOSIS
  4. RIFAMPIN (RIFAMPICIN) (RIFAMPICIN) [Suspect]
     Active Substance: RIFAMPIN
     Indication: TUBERCULOSIS
  5. ETHAMBUTOL [Suspect]
     Active Substance: ETHAMBUTOL HYDROCHLORIDE
     Indication: TUBERCULOSIS

REACTIONS (1)
  - Acute hepatic failure [None]
